FAERS Safety Report 4355553-9 (Version None)
Quarter: 2004Q2

REPORT INFORMATION
  Report Type: 
  Country: None (occurrence: None)
  Receive Date: 20040505
  Receipt Date: 20040421
  Transmission Date: 20050107
  Serious: Yes (Hospitalization)
  Sender: FDA-Public Use
  Company Number: 04P-056-0258135-00

PATIENT
  Age: 61 Year
  Sex: Male

DRUGS (5)
  1. DEPAKOTE [Suspect]
     Indication: BIPOLAR DISORDER
     Dosage: 250 MG, 2 IN 1 D, PER ORAL
     Route: 048
     Dates: start: 20040114, end: 20040201
  2. LOXAPINE SUCCINATE [Concomitant]
  3. ZOLPIDEM [Concomitant]
  4. CYAMEMAZINE [Concomitant]
  5. ALIMEMAZINE TARTRATE [Concomitant]

REACTIONS (2)
  - MICROCYTIC ANAEMIA [None]
  - RASH [None]
